FAERS Safety Report 9962917 (Version 2)
Quarter: 2014Q1

REPORT INFORMATION
  Report Type: Report from Study
  Country: US (occurrence: US)
  Receive Date: 20140305
  Receipt Date: 20140305
  Transmission Date: 20141002
  Serious: No
  Sender: FDA-Public Use
  Company Number: US-ABBVIE-13P-163-1105981-00

PATIENT
  Age: 49 Year
  Sex: Female
  Weight: 60.84 kg

DRUGS (4)
  1. HUMIRA [Suspect]
     Indication: PSORIATIC ARTHROPATHY
     Dates: start: 2011, end: 201306
  2. HUMIRA [Suspect]
     Indication: PSORIASIS
     Dates: start: 201306
  3. LISINOPRIL [Concomitant]
     Indication: HYPERTENSION
  4. PERCOCET [Concomitant]
     Indication: INTERVERTEBRAL DISC DISORDER

REACTIONS (10)
  - Fatigue [Recovered/Resolved]
  - Cellulitis [Recovering/Resolving]
  - Nausea [Recovered/Resolved]
  - Toothache [Recovered/Resolved]
  - Psoriasis [Recovering/Resolving]
  - Suicidal ideation [Recovered/Resolved]
  - Cellulitis [Recovered/Resolved]
  - Back pain [Not Recovered/Not Resolved]
  - Arthralgia [Not Recovered/Not Resolved]
  - Pain in extremity [Not Recovered/Not Resolved]
